FAERS Safety Report 13643015 (Version 3)
Quarter: 2017Q2

REPORT INFORMATION
  Report Type: Spontaneous
  Country: BR (occurrence: BR)
  Receive Date: 20170612
  Receipt Date: 20170626
  Transmission Date: 20170830
  Serious: Yes (Hospitalization)
  Sender: FDA-Public Use
  Company Number: BR-ALEXION-A201705071

PATIENT
  Age: 44 Year
  Sex: Male

DRUGS (2)
  1. SOLIRIS [Suspect]
     Active Substance: ECULIZUMAB
     Dosage: 1200 MG, Q2W
     Route: 042
     Dates: start: 20161222
  2. SOLIRIS [Suspect]
     Active Substance: ECULIZUMAB
     Indication: HAEMOLYTIC URAEMIC SYNDROME
     Dosage: 900 MG, FOR 4 WEEKS
     Route: 042
     Dates: start: 20161124, end: 20161215

REACTIONS (16)
  - Tendon rupture [Not Recovered/Not Resolved]
  - Feeding disorder [Not Recovered/Not Resolved]
  - Weight decreased [Unknown]
  - Malaise [Unknown]
  - Pain [Unknown]
  - Abnormal faeces [Unknown]
  - Gait disturbance [Unknown]
  - Decreased appetite [Unknown]
  - Viral infection [Unknown]
  - Skin lesion [Unknown]
  - Asthenia [Not Recovered/Not Resolved]
  - Diarrhoea [Unknown]
  - Immune system disorder [Unknown]
  - Condition aggravated [Unknown]
  - Blood creatinine increased [Unknown]
  - Abdominal pain [Unknown]

NARRATIVE: CASE EVENT DATE: 20170520
